FAERS Safety Report 22259861 (Version 1)
Quarter: 2023Q2

REPORT INFORMATION
  Report Type: Report from Study
  Country: US (occurrence: US)
  Receive Date: 20230427
  Receipt Date: 20230427
  Transmission Date: 20230722
  Serious: Yes (Other)
  Sender: FDA-Public Use
  Company Number: US-ABBVIE-4739183

PATIENT
  Age: 54 Year
  Sex: Female

DRUGS (1)
  1. HUMIRA [Suspect]
     Active Substance: ADALIMUMAB
     Indication: Rheumatoid arthritis
     Route: 058
     Dates: start: 20180702

REACTIONS (8)
  - Amputee [Unknown]
  - Seasonal allergy [Unknown]
  - Sneezing [Unknown]
  - Pruritus allergic [Unknown]
  - Erythema [Unknown]
  - Rhinorrhoea [Unknown]
  - Ulcer [Unknown]
  - Scar [Unknown]

NARRATIVE: CASE EVENT DATE: 20210420
